FAERS Safety Report 8513362-0 (Version None)
Quarter: 2012Q3

REPORT INFORMATION
  Report Type: 
  Country: None (occurrence: None)
  Receive Date: 20120716
  Receipt Date: 20120712
  Transmission Date: 20120928
  Serious: Yes (Other)
  Sender: FDA-Public Use
  Company Number: US-AMGEN-USASP2012034440

PATIENT
  Age: 80 Year
  Sex: Male
  Weight: 73 kg

DRUGS (3)
  1. PREDNISONE [Concomitant]
     Dosage: 20 MG, UNK
  2. PREDNISONE [Concomitant]
     Indication: IDIOPATHIC THROMBOCYTOPENIC PURPURA
     Dosage: 60 MG, UNK
  3. NPLATE [Suspect]
     Indication: IDIOPATHIC THROMBOCYTOPENIC PURPURA
     Dosage: 450 MUG, QWK
     Route: 058
     Dates: start: 20090116, end: 20120413

REACTIONS (7)
  - CONSTIPATION [None]
  - ABDOMINAL PAIN [None]
  - ACUTE MYELOID LEUKAEMIA [None]
  - HAEMATOMA [None]
  - THROMBOCYTOPENIA [None]
  - RENAL FAILURE [None]
  - ANXIETY [None]
